FAERS Safety Report 24611170 (Version 1)
Quarter: 2024Q4

REPORT INFORMATION
  Report Type: Spontaneous
  Country: US (occurrence: US)
  Receive Date: 20241113
  Receipt Date: 20241113
  Transmission Date: 20250115
  Serious: Yes (Hospitalization)
  Sender: CIPLA
  Company Number: US-MLMSERVICE-20241025-PI240697-00312-1

PATIENT

DRUGS (3)
  1. TESTOSTERONE [Suspect]
     Active Substance: TESTOSTERONE
     Indication: Product used for unknown indication
     Dosage: UNK (HIGH DOSE, LONG-TERM (FOR OVER A DECADE)
     Route: 065
  2. TESTOSTERONE [Suspect]
     Active Substance: TESTOSTERONE
     Dosage: UNK (TESTOSTERONE RE-ADMINISTRATION AND DOSAGE INCREASED BY THE PATIENT?S HOLISTIC PRACTITIONER)
     Route: 065
  3. TESTOSTERONE [Suspect]
     Active Substance: TESTOSTERONE
     Dosage: UNK (REDUCED DOSAGE)
     Route: 065

REACTIONS (7)
  - Agitation [Recovered/Resolved]
  - Insomnia [Recovered/Resolved]
  - Delusion [Recovered/Resolved]
  - Self-injurious ideation [Recovered/Resolved]
  - Blood testosterone increased [Recovered/Resolved]
  - Incorrect dose administered [Unknown]
  - Anxiety [Recovered/Resolved]
